FAERS Safety Report 7457898-2 (Version None)
Quarter: 2011Q2

REPORT INFORMATION
  Report Type: 
  Country: None (occurrence: None)
  Receive Date: 20110504
  Receipt Date: 20110425
  Transmission Date: 20111010
  Serious: Yes (Hospitalization)
  Sender: FDA-Public Use
  Company Number: US-ASTRAZENECA-2010SE13318

PATIENT
  Age: 29090 Day
  Sex: Male
  Weight: 78.5 kg

DRUGS (8)
  1. ATACAND [Suspect]
     Indication: HYPERTENSION
     Route: 048
     Dates: start: 20080725
  2. METOPROLOL SUCCINATE [Concomitant]
     Indication: CORONARY ARTERY DISEASE
     Route: 048
     Dates: start: 20050107
  3. STUDY PROCEDURE [Suspect]
     Indication: HYPERTENSION
  4. ASPIRIN [Concomitant]
     Indication: PERIPHERAL VASCULAR DISORDER
     Route: 048
     Dates: start: 20080409
  5. CADUET [Suspect]
     Indication: HYPERTENSION
     Route: 048
     Dates: start: 20080725
  6. ASPIRIN [Concomitant]
     Indication: CARDIOVASCULAR EVENT PROPHYLAXIS
     Route: 048
     Dates: start: 20080409
  7. PLAVIX [Concomitant]
     Indication: THROMBOSIS PROPHYLAXIS
     Route: 048
     Dates: start: 20051215
  8. DOXAZOSIN MESYLATE [Concomitant]
     Indication: HYPERTENSION
     Route: 048
     Dates: start: 20051215

REACTIONS (1)
  - LOSS OF CONSCIOUSNESS [None]
